FAERS Safety Report 6533981-0 (Version None)
Quarter: 2010Q1

REPORT INFORMATION
  Report Type: 
  Country: None (occurrence: None)
  Receive Date: 20100112
  Receipt Date: 20100105
  Transmission Date: 20100710
  Serious: Yes (Other)
  Sender: FDA-Public Use
  Company Number: US-ROCHE-663045

PATIENT
  Sex: Male

DRUGS (6)
  1. PEGASYS [Suspect]
     Indication: HEPATITIS C
     Dosage: FORM: PRE FILLED SYRINGE. WEEK 20 OF TREATMENT
     Route: 065
     Dates: start: 20090804
  2. COPEGUS [Suspect]
     Indication: HEPATITIS C
     Dosage: DIVIDED DOSES. WEEK 20 OF TREATMENT.
     Route: 065
     Dates: start: 20090804
  3. CARDIZEM [Concomitant]
     Dosage: DRUG: CARDIZEM 120
  4. ASPIRIN [Concomitant]
  5. CENTRUM SILVER [Concomitant]
  6. COENZYME Q10 [Concomitant]

REACTIONS (13)
  - ANAEMIA [None]
  - DIZZINESS [None]
  - DYSGEUSIA [None]
  - GAIT DISTURBANCE [None]
  - HYPERREFLEXIA [None]
  - INJECTION SITE ERYTHEMA [None]
  - NAUSEA [None]
  - NEUROPATHY PERIPHERAL [None]
  - RASH PRURITIC [None]
  - TREMOR [None]
  - VISUAL IMPAIRMENT [None]
  - WEIGHT DECREASED [None]
  - WHITE BLOOD CELL COUNT DECREASED [None]
